FAERS Safety Report 4763739-4 (Version None)
Quarter: 2005Q3

REPORT INFORMATION
  Report Type: 
  Country: None (occurrence: None)
  Receive Date: 20050908
  Receipt Date: 20011108
  Transmission Date: 20060218
  Serious: Yes (Death)
  Sender: FDA-Public Use
  Company Number: US-BRISTOL-MYERS SQUIBB COMPANY-13032743

PATIENT

DRUGS (1)
  1. SERZONE [Suspect]

REACTIONS (1)
  - HEPATIC FAILURE [None]
